FAERS Safety Report 9121551 (Version 2)
Quarter: 2013Q1

REPORT INFORMATION
  Report Type: Spontaneous
  Country: US (occurrence: US)
  Receive Date: 20130227
  Receipt Date: 20130307
  Transmission Date: 20140127
  Serious: Yes (Other)
  Sender: FDA-Public Use
  Company Number: US-AMGEN-USASP2013013184

PATIENT
  Age: 63 Year
  Sex: Female

DRUGS (2)
  1. ENBREL [Suspect]
     Indication: RHEUMATOID ARTHRITIS
     Dosage: UNK
     Dates: start: 2001, end: 201301
  2. SOLARASE [Concomitant]
     Dosage: UNK

REACTIONS (3)
  - Parathyroid tumour benign [Recovered/Resolved]
  - Arthritis [Not Recovered/Not Resolved]
  - Guttate psoriasis [Not Recovered/Not Resolved]
